FAERS Safety Report 6636440-X (Version None)
Quarter: 2010Q1

REPORT INFORMATION
  Report Type: 
  Country: None (occurrence: None)
  Receive Date: 20100311
  Receipt Date: 20100303
  Transmission Date: 20100710
  Serious: Yes (Other)
  Sender: FDA-Public Use
  Company Number: 2009SP028035

PATIENT
  Age: 64 Year
  Sex: Female

DRUGS (2)
  1. INTERFERON ALFA-2B RECOMBINANT (INTERFERON ALFA-2B) [Suspect]
     Indication: HEPATITIS C
     Dosage: ;QW;
  2. RIBAVIRIN [Suspect]
     Indication: HEPATITIS C
     Dosage: ;QW

REACTIONS (1)
  - LICHENOID KERATOSIS [None]
